FAERS Safety Report 5976632-6 (Version None)
Quarter: 2008Q4

REPORT INFORMATION
  Report Type: 
  Country: None (occurrence: None)
  Receive Date: 20081201
  Receipt Date: 20081201
  Transmission Date: 20090506
  Serious: Yes (Life-Threatening, Hospitalization)
  Sender: FDA-Public Use
  Company Number: None

PATIENT
  Age: 68 Year
  Sex: Male
  Weight: 91.6 kg

DRUGS (2)
  1. IMMUNE GLOBULIN (HUMAN) [Suspect]
     Indication: MICROSCOPIC POLYANGIITIS
     Dates: start: 20081119, end: 20081119
  2. IMMUNE GLOBULIN (HUMAN) [Suspect]
     Indication: WEGENER'S GRANULOMATOSIS
     Dates: start: 20081119, end: 20081119

REACTIONS (2)
  - ACUTE PULMONARY OEDEMA [None]
  - HAEMOPTYSIS [None]
